FAERS Safety Report 11771988 (Version 1)
Quarter: 2015Q4

REPORT INFORMATION
  Report Type: Spontaneous
  Country: US (occurrence: None)
  Receive Date: 20151123
  Receipt Date: 20151123
  Transmission Date: 20160304
  Serious: Yes (Other)
  Sender: FDA-Public Use
  Company Number: None

PATIENT
  Age: 60 Year
  Sex: Male
  Weight: 88.45 kg

DRUGS (12)
  1. SINGULAIR [Concomitant]
     Active Substance: MONTELUKAST SODIUM
  2. CANASA [Concomitant]
     Active Substance: MESALAMINE
  3. ZINC [Concomitant]
     Active Substance: ZINC\ZINC CHLORIDE
  4. SYMBICORT [Concomitant]
     Active Substance: BUDESONIDE\FORMOTEROL FUMARATE DIHYDRATE
  5. CALCIUM+ VITAMIN D SUPPLEMENTS [Concomitant]
  6. BALSALIZIDE [Concomitant]
  7. MULTIVITAMINS [Concomitant]
     Active Substance: VITAMINS
  8. PREPOPIK [Suspect]
     Active Substance: ANHYDROUS CITRIC ACID\MAGNESIUM OXIDE\SODIUM PICOSULFATE
     Indication: BOWEL PREPARATION
     Dosage: SPLIT DOSE
     Dates: start: 20151118, end: 20151119
  9. MAGNESIUM [Concomitant]
     Active Substance: MAGNESIUM
  10. FISH OIL [Concomitant]
     Active Substance: FISH OIL
  11. PREPOPIK [Suspect]
     Active Substance: ANHYDROUS CITRIC ACID\MAGNESIUM OXIDE\SODIUM PICOSULFATE
     Indication: COLONOSCOPY
     Dosage: SPLIT DOSE
     Dates: start: 20151118, end: 20151119
  12. GLYCOPYLIORATE/ROBINUL FORTE [Concomitant]

REACTIONS (9)
  - Headache [None]
  - Vomiting [None]
  - Nausea [None]
  - Post procedural complication [None]
  - Self-medication [None]
  - Feeling abnormal [None]
  - Gait disturbance [None]
  - Retching [None]
  - Dizziness [None]

NARRATIVE: CASE EVENT DATE: 20151119
